FAERS Safety Report 8576968 (Version 2)
Quarter: 2014Q1

REPORT INFORMATION
  Report Type: Spontaneous
  Country: US (occurrence: None)
  Receive Date: 20120323
  Receipt Date: 20140306
  Transmission Date: 20141002
  Serious: Yes (Hospitalization)
  Sender: FDA-Public Use
  Company Number: 163-21880-11113842

PATIENT
  Age: 69 Year
  Sex: Female

DRUGS (3)
  1. REVLIMID [Suspect]
     Indication: PLASMA CELL MYELOMA
     Dosage: 10 MG, PO
     Route: 048
     Dates: start: 20111102, end: 20111109
  2. ATENOLOL (ATENOLOL) [Concomitant]
  3. ALLOPURINOL [Concomitant]

REACTIONS (4)
  - Rash [None]
  - Pyrexia [None]
  - Neutropenia [None]
  - Adverse drug reaction [None]
